FAERS Safety Report 8066024-0 (Version None)
Quarter: 2012Q1

REPORT INFORMATION
  Report Type: 
  Country: None (occurrence: None)
  Receive Date: 20120124
  Receipt Date: 20120113
  Transmission Date: 20120608
  Serious: Yes (Hospitalization)
  Sender: FDA-Public Use
  Company Number: IL-NOVOPROD-343065

PATIENT
  Age: 65 Year
  Sex: Female
  Weight: 103 kg

DRUGS (3)
  1. GLUCOPHAGE [Concomitant]
     Dosage: 3X/D
  2. VICTOZA [Suspect]
     Indication: TYPE 2 DIABETES MELLITUS
     Dosage: 1.2 MG, QD
     Route: 065
     Dates: start: 20110201
  3. LOSARTAN POTASSIUM [Concomitant]

REACTIONS (2)
  - BLOOD GLUCOSE INCREASED [None]
  - CHEST DISCOMFORT [None]
